FAERS Safety Report 12238570 (Version 2)
Quarter: 2016Q2

REPORT INFORMATION
  Report Type: Spontaneous
  Country: US (occurrence: US)
  Receive Date: 20160405
  Receipt Date: 20160415
  Transmission Date: 20160815
  Serious: No
  Sender: FDA-Public Use
  Company Number: US-PFIZER INC-2016169738

PATIENT
  Age: 74 Year

DRUGS (2)
  1. PROTONIX [Suspect]
     Active Substance: PANTOPRAZOLE SODIUM
     Indication: GASTROOESOPHAGEAL REFLUX DISEASE
     Dosage: UNK, DAILY (EVERY DAY FOR A WEEK)
  2. PROTONIX [Suspect]
     Active Substance: PANTOPRAZOLE SODIUM
     Dosage: UNK, ALTERNATE DAY (THEN EVERY OTHER DAY)

REACTIONS (3)
  - Drug ineffective [Unknown]
  - Malaise [Unknown]
  - Breakthrough pain [Unknown]
